FAERS Safety Report 18804706 (Version 1)
Quarter: 2021Q1

REPORT INFORMATION
  Report Type: Spontaneous
  Country: US (occurrence: US)
  Receive Date: 20210129
  Receipt Date: 20210129
  Transmission Date: 20210419
  Serious: No
  Sender: FDA-Public Use
  Company Number: US-UCBSA-2020049377

PATIENT
  Age: 66 Year
  Sex: Male

DRUGS (9)
  1. BACLOFEN. [Concomitant]
     Active Substance: BACLOFEN
     Indication: OPSOCLONUS MYOCLONUS
  2. RITUXIMAB. [Concomitant]
     Active Substance: RITUXIMAB
     Indication: OPSOCLONUS MYOCLONUS
  3. VALPROATE SODIUM. [Concomitant]
     Active Substance: VALPROATE SODIUM
     Indication: OPSOCLONUS MYOCLONUS
  4. LEVETIRACETAM. [Suspect]
     Active Substance: LEVETIRACETAM
     Indication: OFF LABEL USE
  5. LACOSAMIDE. [Suspect]
     Active Substance: LACOSAMIDE
     Indication: OPSOCLONUS MYOCLONUS
     Dosage: UNKNOWN DOSE
  6. LEVETIRACETAM. [Suspect]
     Active Substance: LEVETIRACETAM
     Indication: OPSOCLONUS MYOCLONUS
  7. DIAZEPAM. [Concomitant]
     Active Substance: DIAZEPAM
     Indication: OPSOCLONUS MYOCLONUS
  8. PHENYTOIN. [Concomitant]
     Active Substance: PHENYTOIN
     Indication: OPSOCLONUS MYOCLONUS
  9. LACOSAMIDE. [Suspect]
     Active Substance: LACOSAMIDE
     Indication: OFF LABEL USE

REACTIONS (2)
  - Drug ineffective for unapproved indication [Unknown]
  - Off label use [Unknown]
